FAERS Safety Report 26117508 (Version 1)
Quarter: 2025Q4

REPORT INFORMATION
  Report Type: Spontaneous
  Country: RU (occurrence: RU)
  Receive Date: 20251203
  Receipt Date: 20251203
  Transmission Date: 20260117
  Serious: Yes (Other)
  Sender: NOVARTIS
  Company Number: RU-002147023-NVSC2025RU183919

PATIENT
  Sex: Female

DRUGS (2)
  1. DABRAFENIB [Suspect]
     Active Substance: DABRAFENIB
     Indication: Thyroid cancer
     Dosage: 150 MG
     Route: 048
  2. TRAMETINIB [Suspect]
     Active Substance: TRAMETINIB
     Indication: Thyroid cancer
     Dosage: 2 MG
     Route: 048

REACTIONS (3)
  - Rash [Unknown]
  - Poisoning [Unknown]
  - Off label use [Unknown]

NARRATIVE: CASE EVENT DATE: 20251101
